FAERS Safety Report 25228578 (Version 2)
Quarter: 2025Q2

REPORT INFORMATION
  Report Type: Spontaneous
  Country: CN (occurrence: CN)
  Receive Date: 20250423
  Receipt Date: 20250521
  Transmission Date: 20250716
  Serious: Yes (Other)
  Sender: RANBAXY
  Company Number: CN-SUN PHARMACEUTICAL INDUSTRIES LTD-2025R1-504636

PATIENT
  Age: 67 Year
  Sex: Female

DRUGS (2)
  1. DILTIAZEM [Interacting]
     Active Substance: DILTIAZEM
     Indication: Supraventricular tachycardia
     Dosage: 15 MILLIGRAM, BID
     Route: 065
  2. METHOXYPHENAMINE [Suspect]
     Active Substance: METHOXYPHENAMINE
     Indication: COVID-19
     Route: 065

REACTIONS (2)
  - Drug interaction [Unknown]
  - Angina pectoris [Recovered/Resolved]
